FAERS Safety Report 20706199 (Version 1)
Quarter: 2022Q2

REPORT INFORMATION
  Report Type: Spontaneous
  Country: US (occurrence: US)
  Receive Date: 20220413
  Receipt Date: 20220413
  Transmission Date: 20220721
  Serious: Yes (Death, Life-Threatening, Other)
  Sender: FDA-Public Use
  Company Number: US-SLATE RUN PHARMACEUTICALS-22US001020

PATIENT

DRUGS (6)
  1. AZITHROMYCIN [Suspect]
     Active Substance: AZITHROMYCIN
     Indication: Myocarditis bacterial
     Dosage: 10 MILLIGRAM PER KILOGRAM, OVER 60 MINUTES
     Route: 042
  2. AZITHROMYCIN [Suspect]
     Active Substance: AZITHROMYCIN
     Dosage: 10 MILLIGRAM PER KILOGRAM, OVER 60 MINUTES
     Route: 042
  3. AZITHROMYCIN [Suspect]
     Active Substance: AZITHROMYCIN
     Dosage: 10 MILLIGRAM PER KILOGRAM, OVER 60 MINUTES
     Route: 042
  4. MILRINONE [Concomitant]
     Active Substance: MILRINONE
     Indication: Product used for unknown indication
  5. FUROSEMIDE [Concomitant]
     Active Substance: FUROSEMIDE
     Indication: Product used for unknown indication
     Dosage: INTERMITENT
  6. EPINEPHRINE [Concomitant]
     Active Substance: EPINEPHRINE
     Indication: Product used for unknown indication

REACTIONS (5)
  - Death [Fatal]
  - Cardiac arrest [Recovering/Resolving]
  - Hypotension [Recovering/Resolving]
  - Pulse pressure decreased [Recovering/Resolving]
  - Off label use [Recovered/Resolved]
